FAERS Safety Report 8084303-8 (Version None)
Quarter: 2012Q1

REPORT INFORMATION
  Report Type: 
  Country: None (occurrence: None)
  Receive Date: 20120128
  Receipt Date: 20110305
  Transmission Date: 20120608
  Serious: No
  Sender: FDA-Public Use
  Company Number: US-ABBOTT-11P-163-0709747-00

PATIENT
  Age: 40 Year
  Sex: Female

DRUGS (11)
  1. HUMIRA [Suspect]
     Indication: RHEUMATOID ARTHRITIS
     Dates: start: 20100301
  2. TRAMADOL HCL [Concomitant]
     Indication: PAIN
  3. LORATADINE [Concomitant]
     Indication: HYPERSENSITIVITY
  4. FLUTICASONE PROPIONATE [Concomitant]
     Indication: SEASONAL ALLERGY
     Dosage: 2 SPRAYS EACH NOSTRIL
     Route: 045
  5. PROAIR HFA [Concomitant]
     Indication: DYSPNOEA
  6. FOLIC ACID [Concomitant]
     Indication: VITAMIN SUPPLEMENTATION
  7. ESTRADIAL [Concomitant]
     Indication: OESTROGEN REPLACEMENT THERAPY
  8. OMEPRAZOLE [Concomitant]
     Indication: GASTROOESOPHAGEAL REFLUX DISEASE
  9. METHOTREXATE [Concomitant]
     Indication: RHEUMATOID ARTHRITIS
     Dosage: 6 TABLETS WEEKLY
  10. PATANOL [Concomitant]
     Indication: HYPERSENSITIVITY
     Dosage: EYE GTTS
  11. DICLOFENAC SODIUM [Concomitant]
     Indication: INFLAMMATION

REACTIONS (1)
  - INJECTION SITE PRURITUS [None]
